FAERS Safety Report 16199113 (Version 1)
Quarter: 2019Q2

REPORT INFORMATION
  Report Type: Spontaneous
  Country: DE (occurrence: DE)
  Receive Date: 20190415
  Receipt Date: 20190415
  Transmission Date: 20190711
  Serious: Yes (Life-Threatening, Hospitalization, Other)
  Sender: FDA-Public Use
  Company Number: DE-TEVA-2019-DE-1035553

PATIENT
  Age: 56 Year
  Sex: Female
  Weight: 55 kg

DRUGS (2)
  1. TIZANIDINE. [Suspect]
     Active Substance: TIZANIDINE
     Indication: BACK PAIN
     Dosage: 4 MILLIGRAM DAILY;
     Route: 048
     Dates: start: 20180716, end: 20180730
  2. IBUPROFEN. [Concomitant]
     Active Substance: IBUPROFEN
     Dosage: SHORT-TERM INTAKE
     Route: 048

REACTIONS (13)
  - Lymphadenopathy [Not Recovered/Not Resolved]
  - Gamma-glutamyltransferase increased [Not Recovered/Not Resolved]
  - Pyrexia [Not Recovered/Not Resolved]
  - Alanine aminotransferase increased [Not Recovered/Not Resolved]
  - Asthenia [Not Recovered/Not Resolved]
  - Prothrombin level decreased [Not Recovered/Not Resolved]
  - Gallbladder oedema [Not Recovered/Not Resolved]
  - Weight decreased [Not Recovered/Not Resolved]
  - Aspartate aminotransferase increased [Not Recovered/Not Resolved]
  - Jaundice [Not Recovered/Not Resolved]
  - Somnolence [Not Recovered/Not Resolved]
  - Hyperbilirubinaemia [Not Recovered/Not Resolved]
  - Drug-induced liver injury [Not Recovered/Not Resolved]

NARRATIVE: CASE EVENT DATE: 201808
